FAERS Safety Report 6515615-4 (Version None)
Quarter: 2009Q4

REPORT INFORMATION
  Report Type: 
  Country: None (occurrence: None)
  Receive Date: 20091223
  Receipt Date: 20091215
  Transmission Date: 20100525
  Serious: Yes (Other)
  Sender: FDA-Public Use
  Company Number: GB-JNJFOC-20091204502

PATIENT
  Age: 69 Year
  Sex: Male
  Weight: 104 kg

DRUGS (6)
  1. INFLIXIMAB [Suspect]
     Indication: RHEUMATOID ARTHRITIS
     Route: 042
  2. METHOTREXATE [Concomitant]
  3. DOXAZOSIN MESYLATE [Concomitant]
  4. FOLIC ACID [Concomitant]
  5. FYBOGEL [Concomitant]
  6. LANSOPRAZOLE [Concomitant]

REACTIONS (1)
  - COLON CANCER [None]
